FAERS Safety Report 5698179-7 (Version None)
Quarter: 2008Q2

REPORT INFORMATION
  Report Type: 
  Country: None (occurrence: None)
  Receive Date: 20080403
  Receipt Date: 20080321
  Transmission Date: 20081010
  Serious: No
  Sender: FDA-Public Use
  Company Number: 000354

PATIENT
  Age: 15 Year
  Sex: Male

DRUGS (4)
  1. BUSULFEX [Suspect]
     Indication: STEM CELL TRANSPLANT
     Dosage: SEE IMAGE
     Route: 042
     Dates: start: 20071015, end: 20071015
  2. BUSULFEX [Suspect]
     Indication: STEM CELL TRANSPLANT
     Dosage: SEE IMAGE
     Route: 042
     Dates: start: 20071016, end: 20071018
  3. BUSULFEX [Suspect]
     Indication: STEM CELL TRANSPLANT
     Dosage: SEE IMAGE
     Route: 042
     Dates: start: 20071019, end: 20071019
  4. NEUPOGEN [Concomitant]

REACTIONS (3)
  - BONE MARROW TRANSPLANT [None]
  - HAEMATURIA [None]
  - PROTEINURIA [None]
